FAERS Safety Report 6723246-6 (Version None)
Quarter: 2010Q2

REPORT INFORMATION
  Report Type: 
  Country: None (occurrence: None)
  Receive Date: 20100513
  Receipt Date: 20100503
  Transmission Date: 20101027
  Serious: Yes (Hospitalization, Other)
  Sender: FDA-Public Use
  Company Number: CA-ABBOTT-10P-028-0642195-00

PATIENT
  Weight: 63.56 kg

DRUGS (2)
  1. HUMIRA [Suspect]
     Indication: COLITIS ULCERATIVE
     Dosage: FIRST INJECTION
     Route: 058
     Dates: start: 20100408, end: 20100408
  2. HUMIRA [Suspect]
     Dosage: 80 MG AT WEEK 2
     Route: 058
     Dates: start: 20100422, end: 20100422

REACTIONS (4)
  - ASTHENIA [None]
  - COLOSTOMY [None]
  - INTESTINAL PERFORATION [None]
  - PERITONITIS [None]
